FAERS Safety Report 23944608 (Version 1)
Quarter: 2024Q2

REPORT INFORMATION
  Report Type: Spontaneous
  Country: PT (occurrence: PT)
  Receive Date: 20240606
  Receipt Date: 20240606
  Transmission Date: 20240716
  Serious: Yes (Other)
  Sender: FDA-Public Use
  Company Number: PT-PIRAMAL PHARMA LIMITED-2024-PPL-000400

PATIENT
  Age: 23 Year
  Sex: Female

DRUGS (3)
  1. ROPIVACAINE [Suspect]
     Active Substance: ROPIVACAINE
     Indication: Anaesthesia
     Dosage: 10 MILLILITER
     Route: 008
  2. ROPIVACAINE [Suspect]
     Active Substance: ROPIVACAINE
     Dosage: 12 ML OF ROPIVACAINE 0.75%
     Route: 008
  3. SUFENTANIL [Suspect]
     Active Substance: SUFENTANIL
     Indication: Anaesthesia
     Dosage: 10 MICROGRAM
     Route: 008

REACTIONS (3)
  - Horner^s syndrome [Recovered/Resolved]
  - Blood pressure decreased [Recovered/Resolved]
  - Maternal exposure during delivery [Unknown]
